FAERS Safety Report 10252519 (Version 1)
Quarter: 2014Q2

REPORT INFORMATION
  Report Type: Spontaneous
  Country: US (occurrence: US)
  Receive Date: 20140623
  Receipt Date: 20140623
  Transmission Date: 20141212
  Serious: Yes (Hospitalization)
  Sender: FDA-Public Use
  Company Number: US-SHIONOGI, INC-2014000553

PATIENT
  Age: 95 Year
  Sex: Male

DRUGS (1)
  1. GLYCOPYRROLATE [Suspect]
     Indication: SECRETION DISCHARGE
     Dosage: UNK
     Route: 065

REACTIONS (2)
  - Urinary retention [Recovering/Resolving]
  - Constipation [Recovering/Resolving]
